FAERS Safety Report 4758694-7 (Version None)
Quarter: 2005Q3

REPORT INFORMATION
  Report Type: 
  Country: None (occurrence: None)
  Receive Date: 20050830
  Receipt Date: 20050830
  Transmission Date: 20060218
  Serious: Yes (Hospitalization, Other)
  Sender: FDA-Public Use
  Company Number: None

PATIENT
  Sex: Female
  Weight: 61.4 kg

DRUGS (3)
  1. FLUOROURACIL [Suspect]
     Indication: ANAL CANCER
     Dosage: SEE IMAGE
     Route: 042
     Dates: start: 20050824, end: 20050827
  2. CISPLATIN [Suspect]
     Dosage: SEE IMAGE
     Route: 042
     Dates: start: 20050824, end: 20050824
  3. RADIOTHERAPY [Suspect]
     Dates: start: 20050824

REACTIONS (6)
  - DEHYDRATION [None]
  - DIARRHOEA [None]
  - HYPOKALAEMIA [None]
  - HYPONATRAEMIA [None]
  - LETHARGY [None]
  - NAUSEA [None]
